FAERS Safety Report 20711749 (Version 1)
Quarter: 2022Q2

REPORT INFORMATION
  Report Type: Spontaneous
  Country: US (occurrence: US)
  Receive Date: 20220414
  Receipt Date: 20220414
  Transmission Date: 20220721
  Serious: No
  Sender: FDA-Public Use
  Company Number: US-AMNEAL PHARMACEUTICALS-2021-AMRX-03000

PATIENT
  Age: 75 Year
  Sex: Female
  Weight: 76.644 kg

DRUGS (8)
  1. POTASSIUM CHLORIDE [Suspect]
     Active Substance: POTASSIUM CHLORIDE
     Indication: Product used for unknown indication
     Dosage: UNK
     Route: 065
  2. REMODULIN [Suspect]
     Active Substance: TREPROSTINIL
     Indication: Pulmonary arterial hypertension
     Dosage: 0.108 MICROGRAM/KILOGRAM, CONTINUOUS
     Route: 041
     Dates: start: 20160628
  3. REMODULIN [Suspect]
     Active Substance: TREPROSTINIL
     Dosage: UNK UNK, 47 ML/24 HOURS CONTINUOUS
     Route: 041
  4. REMODULIN [Suspect]
     Active Substance: TREPROSTINIL
     Dosage: UNK UNK, 45 ML CONTINUOUS
     Route: 041
     Dates: start: 202106, end: 202106
  5. REMODULIN [Suspect]
     Active Substance: TREPROSTINIL
     Dosage: UNK UNK, 46 ML CONTINUOUS
     Route: 041
     Dates: start: 202106, end: 202106
  6. REMODULIN [Suspect]
     Active Substance: TREPROSTINIL
     Dosage: UNK UNK, 47 ML CONTINUOUS
     Route: 041
     Dates: start: 202106, end: 202106
  7. REMODULIN [Suspect]
     Active Substance: TREPROSTINIL
     Dosage: 0.110 MICROGRAM/KILOGRAM, CONTINUOUS
     Route: 041
  8. OPSUMIT [Concomitant]
     Active Substance: MACITENTAN
     Indication: Product used for unknown indication
     Dosage: UNK
     Route: 065

REACTIONS (10)
  - Dyspnoea [Unknown]
  - Dizziness [Unknown]
  - Feeling abnormal [Unknown]
  - Hyperhidrosis [Recovered/Resolved]
  - Dyspnoea exertional [Unknown]
  - Palpitations [Unknown]
  - Weight decreased [Unknown]
  - Sinus disorder [Unknown]
  - Oxygen consumption increased [Recovered/Resolved]
  - Diarrhoea [Recovering/Resolving]

NARRATIVE: CASE EVENT DATE: 20210501
